FAERS Safety Report 20860259 (Version 4)
Quarter: 2022Q2

REPORT INFORMATION
  Report Type: Report from Study
  Country: US (occurrence: US)
  Receive Date: 20220523
  Receipt Date: 20220623
  Transmission Date: 20220721
  Serious: Yes (Hospitalization, Other)
  Sender: FDA-Public Use
  Company Number: US-GILEAD-2022-0582554

PATIENT
  Age: 72 Year
  Sex: Female
  Weight: 75 kg

DRUGS (8)
  1. AMBRISENTAN [Suspect]
     Active Substance: AMBRISENTAN
     Indication: Pulmonary hypertension
     Dosage: 5 MG, QD
     Route: 065
     Dates: start: 20220505
  2. MACITENTAN [Suspect]
     Active Substance: MACITENTAN
     Indication: Pulmonary arterial hypertension
     Dosage: 10 MG
     Route: 048
     Dates: start: 202101, end: 20220414
  3. UPTRAVI [Suspect]
     Active Substance: SELEXIPAG
     Indication: Pulmonary arterial hypertension
     Dosage: 400 UG, BID
     Route: 048
     Dates: start: 202108
  4. UPTRAVI [Suspect]
     Active Substance: SELEXIPAG
     Indication: Pulmonary hypertension
     Dosage: 1400 UG, BID
     Route: 048
  5. UPTRAVI [Suspect]
     Active Substance: SELEXIPAG
     Dosage: 1200 UG, BID
     Route: 048
     Dates: start: 2021
  6. UPTRAVI [Suspect]
     Active Substance: SELEXIPAG
     Dosage: 600 UG
     Route: 048
  7. XARELTO [Concomitant]
     Active Substance: RIVAROXABAN
  8. ADEMPAS [Concomitant]
     Active Substance: RIOCIGUAT

REACTIONS (17)
  - Impaired gastric emptying [Not Recovered/Not Resolved]
  - Intestinal obstruction [Unknown]
  - Gastrointestinal haemorrhage [Unknown]
  - Coma [Unknown]
  - Gastrointestinal arteriovenous malformation [Unknown]
  - Pulmonary hypertension [Unknown]
  - Diarrhoea [Recovering/Resolving]
  - Nausea [Unknown]
  - Arthralgia [Unknown]
  - Migraine [Unknown]
  - Temporomandibular joint syndrome [Unknown]
  - Fatigue [Recovering/Resolving]
  - Mean arterial pressure decreased [Unknown]
  - Pain in extremity [Unknown]
  - Headache [Unknown]
  - Nasal congestion [Unknown]
  - Intentional dose omission [Not Recovered/Not Resolved]

NARRATIVE: CASE EVENT DATE: 20220518
